FAERS Safety Report 4441625-7 (Version None)
Quarter: 2004Q3

REPORT INFORMATION
  Report Type: 
  Country: None (occurrence: None)
  Receive Date: 20040907
  Receipt Date: 20040824
  Transmission Date: 20050211
  Serious: Yes (Other)
  Sender: FDA-Public Use
  Company Number: 200418435GDDC

PATIENT
  Age: 2 Year
  Sex: Male

DRUGS (2)
  1. RIFAMPICIN [Suspect]
     Indication: TUBERCULOSIS PROPHYLAXIS
     Route: 048
  2. ISONIAZID [Suspect]
     Indication: TUBERCULOSIS PROPHYLAXIS

REACTIONS (12)
  - AREFLEXIA [None]
  - BLOOD ALKALINE PHOSPHATASE INCREASED [None]
  - BLOOD PARATHYROID HORMONE INCREASED [None]
  - DRUG INEFFECTIVE [None]
  - EYELID PTOSIS [None]
  - GUILLAIN-BARRE SYNDROME [None]
  - HYPERPHOSPHATAEMIA [None]
  - HYPOCALCAEMIA [None]
  - HYPOTONIA [None]
  - PARAPLEGIA [None]
  - SENSORY DISTURBANCE [None]
  - VITAMIN D DECREASED [None]
